FAERS Safety Report 5487915-0 (Version None)
Quarter: 2007Q4

REPORT INFORMATION
  Report Type: 
  Country: None (occurrence: None)
  Receive Date: 20071012
  Receipt Date: 20071012
  Transmission Date: 20080405
  Serious: Yes (Life-Threatening)
  Sender: FDA-Public Use
  Company Number: None

PATIENT
  Age: 22 Year
  Sex: Female
  Weight: 60 kg

DRUGS (1)
  1. BACTRIM DS [Suspect]
     Indication: FOLLICULITIS
     Dosage: 800/160 BID PO
     Route: 048
     Dates: start: 20071001, end: 20071010

REACTIONS (6)
  - CHILLS [None]
  - EYE SWELLING [None]
  - OCULAR HYPERAEMIA [None]
  - PANCYTOPENIA [None]
  - RASH ERYTHEMATOUS [None]
  - RASH GENERALISED [None]
